FAERS Safety Report 21381085 (Version 1)
Quarter: 2022Q3

REPORT INFORMATION
  Report Type: Spontaneous
  Country: US (occurrence: US)
  Receive Date: 20220927
  Receipt Date: 20220927
  Transmission Date: 20221027
  Serious: Yes (Hospitalization)
  Sender: FDA-Public Use
  Company Number: US-LOREAL USA PRODUCTS, INC.-2022LOR00092

PATIENT
  Sex: Female

DRUGS (2)
  1. TITANIUM DIOXIDE\ZINC OXIDE [Suspect]
     Active Substance: TITANIUM DIOXIDE\ZINC OXIDE
     Dosage: UNK
     Dates: start: 20220824, end: 20220825
  2. IT COSMETICS YOUR SKIN BUT BETTER CC PLUS COLOR CORRECTING BROAD SPECT [Suspect]
     Active Substance: TITANIUM DIOXIDE\ZINC OXIDE
     Dosage: UNK
     Dates: start: 20220824, end: 20220825

REACTIONS (2)
  - Ocular hyperaemia [Recovered/Resolved]
  - Burning sensation [Recovered/Resolved]

NARRATIVE: CASE EVENT DATE: 20220824
